FAERS Safety Report 9354356 (Version 2)
Quarter: 2013Q2

REPORT INFORMATION
  Report Type: Spontaneous
  Country: GB (occurrence: None)
  Receive Date: 20130613
  Receipt Date: 20130627
  Transmission Date: 20140414
  Serious: Yes (Hospitalization)
  Sender: FDA-Public Use
  Company Number: SYM-2013-04241

PATIENT
  Age: 72 Year
  Sex: Female

DRUGS (6)
  1. 5 FU [Suspect]
     Indication: COLORECTAL CANCER
     Route: 042
     Dates: start: 20130306, end: 20130306
  2. IRINOTECAN [Suspect]
     Indication: COLORECTAL CANCER
     Dosage: 330 MG, EVERY OTHER WEEK, INTRAVENOUS (NOT OTHERWISE SPECIFIED)
     Route: 042
     Dates: start: 20130306, end: 20130306
  3. LEUCOVORIN [Suspect]
     Indication: COLORECTAL CANCER
     Dosage: 750 MG, EVERY OTHER WEEK, INTRAVENOUS (NOT OTHERWISE SPECIFIED)
     Route: 042
     Dates: start: 20130306, end: 20130306
  4. AFLIBERCEPT [Suspect]
     Indication: COLORECTAL CANCER
     Dosage: 300 MG, EVERY OTHER WEEK, INTRAVENOUS (NOT OTHERWISE SPECIFIED)
     Route: 042
     Dates: start: 20130306, end: 20130306
  5. ACICLOVIR (ACICLOVIR) (ACICLOVIR) [Concomitant]
  6. DIFFLAM (BENZYDAMINE HYDROCHLORIDE) (BENZYDAMINE HYDROCHLORIDE) [Concomitant]

REACTIONS (6)
  - Dehydration [None]
  - Vomiting [None]
  - Malaise [None]
  - Lactic acidosis [None]
  - Hypophagia [None]
  - Fluid intake reduced [None]
